FAERS Safety Report 9686698 (Version 1)
Quarter: 2013Q4

REPORT INFORMATION
  Report Type: Spontaneous
  Country: FR (occurrence: FR)
  Receive Date: 20131113
  Receipt Date: 20131113
  Transmission Date: 20140711
  Serious: Yes (Hospitalization)
  Sender: FDA-Public Use
  Company Number: US-ASTRAZENECA-2013SE83417

PATIENT
  Age: 87 Year
  Sex: Female

DRUGS (7)
  1. COKENZEN [Suspect]
     Indication: HYPERTENSION
     Dosage: 8 MG/ 12.5 MG 1 DOSAGE FORM ONCE DAILY
     Route: 048
     Dates: end: 20130823
  2. DAFALGAN CODEINE [Suspect]
     Indication: PRODUCT USED FOR UNKNOWN INDICATION
     Dosage: 1 DF FOUR TIMES DAILY
     Route: 048
     Dates: end: 20130823
  3. MONOCRIXO LP [Suspect]
     Indication: PRODUCT USED FOR UNKNOWN INDICATION
     Route: 048
     Dates: end: 20130823
  4. SERESTA [Concomitant]
     Route: 050
  5. LEVOTHYROX [Concomitant]
     Route: 050
     Dates: start: 20130810
  6. KAYEXALATE [Concomitant]
     Route: 050
  7. TAHOR [Concomitant]
     Dosage: UNK
     Route: 050

REACTIONS (6)
  - Fall [Recovered/Resolved]
  - Somnolence [Recovered/Resolved]
  - Loss of consciousness [Recovered/Resolved]
  - Confusional state [Recovered/Resolved]
  - Craniocerebral injury [Recovered/Resolved]
  - Hypotension [Recovered/Resolved]
